FAERS Safety Report 8353691-7 (Version None)
Quarter: 2012Q2

REPORT INFORMATION
  Report Type: 
  Country: None (occurrence: None)
  Receive Date: 20120509
  Receipt Date: 20120428
  Transmission Date: 20120825
  Serious: No
  Sender: FDA-Public Use
  Company Number: 2012SP022913

PATIENT
  Age: 35 Year
  Sex: Female

DRUGS (3)
  1. NEURONTIN [Concomitant]
  2. KLONOPIN [Concomitant]
  3. SAPHRIS [Suspect]
     Indication: SCHIZOPHRENIA
     Dosage: 10 MG; HS

REACTIONS (1)
  - DYSPNOEA [None]
